FAERS Safety Report 6520384-8 (Version None)
Quarter: 2009Q4

REPORT INFORMATION
  Report Type: 
  Country: None (occurrence: None)
  Receive Date: 20091229
  Receipt Date: 20090212
  Transmission Date: 20100525
  Serious: Yes (Hospitalization)
  Sender: FDA-Public Use
  Company Number: JP-JNJFOC-20090201601

PATIENT
  Sex: Female
  Weight: 45 kg

DRUGS (14)
  1. REMICADE [Suspect]
     Indication: RHEUMATOID ARTHRITIS
     Route: 042
  2. RHEUMATREX [Suspect]
     Indication: RHEUMATOID ARTHRITIS
     Route: 048
  3. METHOTREXATE [Suspect]
     Indication: RHEUMATOID ARTHRITIS
     Route: 048
  4. CALONAL [Concomitant]
     Indication: PREMEDICATION
     Route: 048
  5. CELESTAMINE TAB [Concomitant]
     Indication: PROPHYLAXIS
     Route: 048
  6. SOLU-CORTEF [Concomitant]
     Indication: PROPHYLAXIS
  7. PREDNISOLONE [Concomitant]
     Route: 048
  8. CYTOTEC [Concomitant]
     Route: 048
  9. CLINORIL [Concomitant]
     Route: 048
  10. SELTOUCH [Concomitant]
     Route: 048
  11. ALFAROL [Concomitant]
     Route: 048
  12. PARIET [Concomitant]
     Route: 048
  13. ACARBOSE [Concomitant]
     Route: 048
  14. FASTIC [Concomitant]
     Route: 048

REACTIONS (2)
  - ILEAL ULCER PERFORATION [None]
  - PANCYTOPENIA [None]
